FAERS Safety Report 5865310-X (Version None)
Quarter: 2008Q3

REPORT INFORMATION
  Report Type: 
  Country: None (occurrence: None)
  Receive Date: 20080829
  Receipt Date: 20080822
  Transmission Date: 20090109
  Serious: Yes (Other)
  Sender: FDA-Public Use
  Company Number: US-MERCK-0808USA04356

PATIENT
  Age: 74 Year
  Sex: Female

DRUGS (7)
  1. ZOCOR [Suspect]
     Indication: BLOOD CHOLESTEROL INCREASED
     Route: 048
     Dates: start: 20060101, end: 20070101
  2. ZOCOR [Suspect]
     Route: 048
     Dates: start: 20080801
  3. LASIX [Concomitant]
     Route: 065
  4. ALTACE [Concomitant]
     Route: 065
  5. PROTONIX [Concomitant]
     Route: 065
  6. [THERAPY UNSPECIFIED] [Concomitant]
     Route: 065
  7. AGGRENOX [Concomitant]
     Route: 065

REACTIONS (3)
  - DEAFNESS [None]
  - MYALGIA [None]
  - OEDEMA PERIPHERAL [None]
